FAERS Safety Report 21935243 (Version 1)
Quarter: 2023Q1

REPORT INFORMATION
  Report Type: Spontaneous
  Country: JP (occurrence: JP)
  Receive Date: 20230201
  Receipt Date: 20230201
  Transmission Date: 20230418
  Serious: Yes (Other)
  Sender: FDA-Public Use
  Company Number: JP-Accord-298496

PATIENT
  Age: 72 Year
  Sex: Female

DRUGS (2)
  1. ARIPIPRAZOLE [Suspect]
     Active Substance: ARIPIPRAZOLE
     Indication: Hallucination, auditory
  2. TRAMADOL [Concomitant]
     Active Substance: TRAMADOL
     Indication: Back pain
     Dosage: INCREASED TO 200MG, 300MG, 200MG 100MF THEN TAPERED OFF IN 25?MG AND DISCONTINUED

REACTIONS (2)
  - Arrhythmia [Unknown]
  - Rash [Unknown]
